FAERS Safety Report 11239325 (Version 2)
Quarter: 2015Q3

REPORT INFORMATION
  Report Type: Report from Study
  Country: DE (occurrence: DE)
  Receive Date: 20150706
  Receipt Date: 20150911
  Transmission Date: 20151125
  Serious: Yes (Hospitalization, Other)
  Sender: FDA-Public Use
  Company Number: DE-ABBVIE-15K-062-1418999-00

PATIENT
  Sex: Female
  Weight: 54 kg

DRUGS (1)
  1. HUMIRA [Suspect]
     Active Substance: ADALIMUMAB
     Indication: CROHN^S DISEASE
     Route: 065

REACTIONS (3)
  - Vesical fistula [Recovered/Resolved]
  - Enterocutaneous fistula [Recovering/Resolving]
  - Enterovesical fistula [Recovering/Resolving]

NARRATIVE: CASE EVENT DATE: 20140506
